FAERS Safety Report 7580631-0 (Version None)
Quarter: 2011Q2

REPORT INFORMATION
  Report Type: 
  Country: None (occurrence: None)
  Receive Date: 20110629
  Receipt Date: 20110613
  Transmission Date: 20111010
  Serious: No
  Sender: FDA-Public Use
  Company Number: US-B.I. PHARMACEUTICALS,INC./RIDGEFIELD-2011-BP-14279BP

PATIENT
  Sex: Female

DRUGS (5)
  1. SIMVASTATIN [Concomitant]
     Indication: BLOOD CHOLESTEROL INCREASED
     Dosage: 80 MG
     Route: 048
  2. PLAVIX [Concomitant]
     Indication: PROPHYLAXIS
     Dosage: 75 MG
     Route: 048
  3. ASPIRIN [Concomitant]
     Indication: PROPHYLAXIS
     Dosage: 81 MG
     Route: 048
  4. SPIRIVA [Suspect]
     Indication: CHRONIC OBSTRUCTIVE PULMONARY DISEASE
     Dosage: 18 MCG
     Route: 055
     Dates: start: 20110301
  5. CARVEDILOL [Concomitant]
     Indication: CARDIAC DISORDER
     Dosage: 25 MG
     Route: 048

REACTIONS (1)
  - DRUG INEFFECTIVE [None]
